FAERS Safety Report 5423832-X (Version None)
Quarter: 2007Q3

REPORT INFORMATION
  Report Type: 
  Country: None (occurrence: None)
  Receive Date: 20070823
  Receipt Date: 20070821
  Transmission Date: 20080115
  Serious: Yes (Other)
  Sender: FDA-Public Use
  Company Number: CO-BRISTOL-MYERS SQUIBB COMPANY-13874573

PATIENT
  Sex: Male

DRUGS (1)
  1. CYCLOPHOSPHAMIDE [Suspect]

REACTIONS (5)
  - BREAST CANCER [None]
  - CERVICAL DYSPLASIA [None]
  - COLON ADENOMA [None]
  - LYMPHOMA [None]
  - MALIGNANT MELANOMA [None]
